FAERS Safety Report 10171635 (Version 2)
Quarter: 2014Q2

REPORT INFORMATION
  Report Type: Spontaneous
  Country: US (occurrence: US)
  Receive Date: 20140514
  Receipt Date: 20140519
  Transmission Date: 20141212
  Serious: Yes (Hospitalization)
  Sender: FDA-Public Use
  Company Number: US-BAXTER-2014BAX023520

PATIENT
  Sex: Male
  Weight: 118.18 kg

DRUGS (4)
  1. DIANEAL LOW CALCIUM [Suspect]
     Indication: RENAL FAILURE CHRONIC
     Route: 033
     Dates: start: 201106
  2. DIANEAL LOW CALCIUM [Suspect]
     Route: 033
     Dates: start: 201106
  3. DIANEAL LOW CALCIUM [Suspect]
     Indication: RENAL FAILURE CHRONIC
     Route: 033
     Dates: start: 201106
  4. DIANEAL LOW CALCIUM [Suspect]
     Route: 033
     Dates: start: 201106

REACTIONS (2)
  - Skin ulcer [Recovering/Resolving]
  - Skin discolouration [Recovering/Resolving]
